FAERS Safety Report 24903654 (Version 5)
Quarter: 2025Q2

REPORT INFORMATION
  Report Type: Report from Study
  Country: JP (occurrence: JP)
  Receive Date: 20250130
  Receipt Date: 20250515
  Transmission Date: 20250716
  Serious: Yes (Other)
  Sender: UCB
  Company Number: JP-UCBJ-CD202403970UCBPHAPROD

PATIENT
  Age: 50 Year
  Sex: Male
  Weight: 70 kg

DRUGS (8)
  1. ZILUCOPLAN [Suspect]
     Active Substance: ZILUCOPLAN
     Indication: Myasthenia gravis
     Route: 058
     Dates: start: 20240424
  2. INSULIN NOS [Suspect]
     Active Substance: INSULIN NOS
     Indication: Steroid diabetes
     Dosage: UNK, 3X/DAY (TID)
  3. INSULIN NOS [Suspect]
     Active Substance: INSULIN NOS
     Dates: start: 202404
  4. DUPIXENT [Concomitant]
     Active Substance: DUPILUMAB
     Indication: Product used for unknown indication
  5. NEORAL [Concomitant]
     Active Substance: CYCLOSPORINE
     Indication: Myasthenia gravis
     Dosage: 100 MILLIGRAM, ONCE DAILY (QD)
     Route: 048
  6. MESTINON [Concomitant]
     Active Substance: PYRIDOSTIGMINE BROMIDE
     Indication: Myasthenia gravis
     Dosage: 60 MILLIGRAM, ONCE DAILY (QD)
     Route: 048
     Dates: end: 20240501
  7. MENINGOCOCCAL VACCINE A CONJ (TET TOX) [Concomitant]
     Indication: Product used for unknown indication
     Route: 030
     Dates: start: 20240410
  8. MENINGOCOCCAL VACCINE A CONJ (TET TOX) [Concomitant]
     Route: 030
     Dates: start: 20240612

REACTIONS (9)
  - Myasthenia gravis [Unknown]
  - Hypoglycaemia [Recovered/Resolved]
  - Injection site pain [Unknown]
  - Chronic eosinophilic rhinosinusitis [Unknown]
  - Sciatica [Recovered/Resolved]
  - Back pain [Unknown]
  - Dysstasia [Unknown]
  - Treatment noncompliance [Unknown]
  - Weight increased [Not Recovered/Not Resolved]

NARRATIVE: CASE EVENT DATE: 20240516
